FAERS Safety Report 16481304 (Version 1)
Quarter: 2019Q2

REPORT INFORMATION
  Report Type: Report from Study
  Country: PT (occurrence: PT)
  Receive Date: 20190626
  Receipt Date: 20190626
  Transmission Date: 20190711
  Serious: Yes (Disabling)
  Sender: FDA-Public Use
  Company Number: PT-BIOGEN-2019BI00755425

PATIENT
  Sex: Male

DRUGS (1)
  1. TECFIDERA [Suspect]
     Active Substance: DIMETHYL FUMARATE
     Indication: MULTIPLE SCLEROSIS
     Route: 048
     Dates: start: 201707

REACTIONS (3)
  - Diplopia [Not Recovered/Not Resolved]
  - Hypotension [Not Recovered/Not Resolved]
  - Photophobia [Not Recovered/Not Resolved]
